FAERS Safety Report 15904078 (Version 1)
Quarter: 2019Q1

REPORT INFORMATION
  Report Type: Spontaneous
  Country: US (occurrence: US)
  Receive Date: 20190204
  Receipt Date: 20190204
  Transmission Date: 20190417
  Serious: No
  Sender: FDA-Public Use
  Company Number: US-AUROBINDO-AUR-APL-2018-015954

PATIENT
  Age: 3 Year
  Sex: Male

DRUGS (1)
  1. CEFDINIR ORAL SUSPENSION [Suspect]
     Active Substance: CEFDINIR
     Indication: PRODUCT USED FOR UNKNOWN INDICATION
     Dosage: UNK
     Route: 048

REACTIONS (2)
  - Eczema [Not Recovered/Not Resolved]
  - Anger [Not Recovered/Not Resolved]
